FAERS Safety Report 25118728 (Version 1)
Quarter: 2025Q1

REPORT INFORMATION
  Report Type: Spontaneous
  Country: US (occurrence: US)
  Receive Date: 20250325
  Receipt Date: 20250325
  Transmission Date: 20250409
  Serious: No
  Sender: TEVA
  Company Number: US-TEVA-VS-3308156

PATIENT
  Sex: Male

DRUGS (1)
  1. QVAR REDIHALER [Suspect]
     Active Substance: BECLOMETHASONE DIPROPIONATE
     Indication: Cough
     Dosage: 2 PUFFS DAILY
     Route: 055
     Dates: start: 20250310

REACTIONS (2)
  - Dizziness [Unknown]
  - Product use in unapproved indication [Unknown]
